FAERS Safety Report 21175786 (Version 1)
Quarter: 2022Q3

REPORT INFORMATION
  Report Type: Spontaneous
  Country: US (occurrence: US)
  Receive Date: 20220805
  Receipt Date: 20220805
  Transmission Date: 20221027
  Serious: No
  Sender: FDA-Public Use
  Company Number: US-AMGEN-USASP2022129848

PATIENT
  Sex: Female

DRUGS (1)
  1. PROLIA [Suspect]
     Active Substance: DENOSUMAB
     Indication: Product used for unknown indication
     Dosage: UNK
     Route: 065
     Dates: start: 202202

REACTIONS (5)
  - Rheumatoid factor increased [Unknown]
  - Pain in jaw [Unknown]
  - Arthralgia [Unknown]
  - Alopecia [Unknown]
  - Back pain [Unknown]

NARRATIVE: CASE EVENT DATE: 20220101
